FAERS Safety Report 15333819 (Version 1)
Quarter: 2018Q3

REPORT INFORMATION
  Report Type: Spontaneous
  Country: US (occurrence: US)
  Receive Date: 20180825
  Receipt Date: 20180825
  Transmission Date: 20181010
  Serious: Yes (Life-Threatening, Hospitalization)
  Sender: FDA-Public Use
  Company Number: None

PATIENT
  Age: 47 Year
  Sex: Female
  Weight: 77.5 kg

DRUGS (1)
  1. ISOSULFAN BLUE. [Suspect]
     Active Substance: ISOSULFAN BLUE
     Indication: VASCULAR TEST
     Dates: start: 20180824

REACTIONS (3)
  - Hypotension [None]
  - Angioedema [None]
  - Anaphylactic reaction [None]

NARRATIVE: CASE EVENT DATE: 20180824
